FAERS Safety Report 19806710 (Version 7)
Quarter: 2025Q1

REPORT INFORMATION
  Report Type: Spontaneous
  Country: US (occurrence: US)
  Receive Date: 20210908
  Receipt Date: 20250117
  Transmission Date: 20250409
  Serious: Yes (Life-Threatening, Hospitalization, Other)
  Sender: ALEXION PHARMACEUTICALS
  Company Number: 2021A717115

PATIENT
  Age: 42 Year
  Weight: 122.47 kg

DRUGS (57)
  1. XIGDUO XR [Suspect]
     Active Substance: DAPAGLIFLOZIN PROPANEDIOL\METFORMIN HYDROCHLORIDE
     Route: 048
  2. XIGDUO XR [Suspect]
     Active Substance: DAPAGLIFLOZIN PROPANEDIOL\METFORMIN HYDROCHLORIDE
  3. XIGDUO XR [Suspect]
     Active Substance: DAPAGLIFLOZIN PROPANEDIOL\METFORMIN HYDROCHLORIDE
  4. XIGDUO XR [Suspect]
     Active Substance: DAPAGLIFLOZIN PROPANEDIOL\METFORMIN HYDROCHLORIDE
     Route: 048
  5. XIGDUO XR [Suspect]
     Active Substance: DAPAGLIFLOZIN PROPANEDIOL\METFORMIN HYDROCHLORIDE
  6. XIGDUO XR [Suspect]
     Active Substance: DAPAGLIFLOZIN PROPANEDIOL\METFORMIN HYDROCHLORIDE
     Route: 048
  7. XIGDUO XR [Suspect]
     Active Substance: DAPAGLIFLOZIN PROPANEDIOL\METFORMIN HYDROCHLORIDE
  8. XIGDUO XR [Suspect]
     Active Substance: DAPAGLIFLOZIN PROPANEDIOL\METFORMIN HYDROCHLORIDE
     Route: 048
  9. XIGDUO XR [Suspect]
     Active Substance: DAPAGLIFLOZIN PROPANEDIOL\METFORMIN HYDROCHLORIDE
  10. XIGDUO XR [Suspect]
     Active Substance: DAPAGLIFLOZIN PROPANEDIOL\METFORMIN HYDROCHLORIDE
  11. XIGDUO XR [Suspect]
     Active Substance: DAPAGLIFLOZIN PROPANEDIOL\METFORMIN HYDROCHLORIDE
     Route: 048
  12. XIGDUO XR [Suspect]
     Active Substance: DAPAGLIFLOZIN PROPANEDIOL\METFORMIN HYDROCHLORIDE
     Route: 048
  13. XIGDUO XR [Suspect]
     Active Substance: DAPAGLIFLOZIN PROPANEDIOL\METFORMIN HYDROCHLORIDE
  14. XIGDUO XR [Suspect]
     Active Substance: DAPAGLIFLOZIN PROPANEDIOL\METFORMIN HYDROCHLORIDE
     Route: 048
  15. XIGDUO XR [Suspect]
     Active Substance: DAPAGLIFLOZIN PROPANEDIOL\METFORMIN HYDROCHLORIDE
  16. XIGDUO XR [Suspect]
     Active Substance: DAPAGLIFLOZIN PROPANEDIOL\METFORMIN HYDROCHLORIDE
     Route: 048
  17. LISINOPRIL [Concomitant]
     Active Substance: LISINOPRIL
     Indication: Hypertension
  18. SIMVASTATIN [Concomitant]
     Active Substance: SIMVASTATIN
  19. IBUPROFEN [Concomitant]
     Active Substance: IBUPROFEN
  20. DOXYCYCLINE [Concomitant]
     Active Substance: DOXYCYCLINE
  21. GABAPENTIN [Concomitant]
     Active Substance: GABAPENTIN
  22. HYOSCYAMINE [Concomitant]
     Active Substance: HYOSCYAMINE
  23. HYDROCODONE [Concomitant]
     Active Substance: HYDROCODONE
  24. RIFAMPIN [Concomitant]
     Active Substance: RIFAMPIN
  25. DICLOFENAC [Concomitant]
     Active Substance: DICLOFENAC
  26. NAPROXEN [Concomitant]
     Active Substance: NAPROXEN
  27. CYCLOBENZAPRINE [Concomitant]
     Active Substance: CYCLOBENZAPRINE
  28. MINOCYCLINE [Concomitant]
     Active Substance: MINOCYCLINE HYDROCHLORIDE
  29. METFORMIN [Concomitant]
     Active Substance: METFORMIN HYDROCHLORIDE
  30. TRIMETHOPRIM [Concomitant]
     Active Substance: TRIMETHOPRIM
  31. BOLUS ADSTRINGENS [Concomitant]
  32. FLUCONAZOLE [Concomitant]
     Active Substance: FLUCONAZOLE
  33. AMOXICILLIN [Concomitant]
     Active Substance: AMOXICILLIN
  34. AZO GANTANOL [Concomitant]
     Active Substance: PHENAZOPYRIDINE HYDROCHLORIDE\SULFAMETHOXAZOLE
  35. METHADONE [Concomitant]
     Active Substance: METHADONE HYDROCHLORIDE
  36. GLUCOTROL [Concomitant]
     Active Substance: GLIPIZIDE
  37. MONODOX [Concomitant]
     Active Substance: DOXYCYCLINE
  38. OMEPRAZOLE [Concomitant]
     Active Substance: OMEPRAZOLE
  39. MONTELUKAST [Concomitant]
     Active Substance: MONTELUKAST
  40. LANTUS [Concomitant]
     Active Substance: INSULIN GLARGINE
     Indication: Diabetes mellitus
  41. ATORVASTATIN [Concomitant]
     Active Substance: ATORVASTATIN
     Indication: Blood cholesterol increased
  42. CEPHALEXIN [Concomitant]
     Active Substance: CEPHALEXIN
  43. VANCOMYCIN [Concomitant]
     Active Substance: VANCOMYCIN
  44. OXYCODONE [Concomitant]
     Active Substance: OXYCODONE
  45. LORAZEPAM [Concomitant]
     Active Substance: LORAZEPAM
  46. CHOLECALCIFEROL [Concomitant]
     Active Substance: CHOLECALCIFEROL
  47. FENOFIBRATE [Concomitant]
     Active Substance: FENOFIBRATE
  48. ONDANSETRON [Concomitant]
     Active Substance: ONDANSETRON
  49. ERGOCALCIFEROL [Concomitant]
     Active Substance: ERGOCALCIFEROL
  50. AMLODIPINE [Concomitant]
     Active Substance: AMLODIPINE BESYLATE
  51. GLYCOPYRROLATE [Concomitant]
     Active Substance: GLYCOPYRROLATE
  52. BUPIVACAINE [Concomitant]
     Active Substance: BUPIVACAINE
  53. ALBUTEROL [Concomitant]
     Active Substance: ALBUTEROL
  54. GLIPIZIDE [Concomitant]
     Active Substance: GLIPIZIDE
  55. LANTUS [Concomitant]
     Active Substance: INSULIN GLARGINE
  56. TRULICITY [Concomitant]
     Active Substance: DULAGLUTIDE
  57. CEFDINIR [Concomitant]
     Active Substance: CEFDINIR

REACTIONS (11)
  - Fournier^s gangrene [Unknown]
  - Musculoskeletal pain [Unknown]
  - Abscess limb [Unknown]
  - Sepsis [Unknown]
  - Gangrene [Unknown]
  - Subcutaneous abscess [Unknown]
  - Cellulitis [Unknown]
  - Necrotising fasciitis [Unknown]
  - Genital abscess [Unknown]
  - Anal abscess [Unknown]
  - Abdominal wall abscess [Unknown]
